FAERS Safety Report 10289810 (Version 14)
Quarter: 2015Q3

REPORT INFORMATION
  Report Type: Spontaneous
  Country: CA (occurrence: CA)
  Receive Date: 20140710
  Receipt Date: 20150720
  Transmission Date: 20151125
  Serious: Yes (Hospitalization, Other)
  Sender: FDA-Public Use
  Company Number: CA-ROCHE-1417151

PATIENT
  Age: 34 Year
  Sex: Female

DRUGS (7)
  1. BRICANYL [Concomitant]
     Active Substance: TERBUTALINE SULFATE
     Route: 065
     Dates: start: 2014
  2. CETIRIZINE [Concomitant]
     Active Substance: CETIRIZINE HYDROCHLORIDE
  3. XOLAIR [Suspect]
     Active Substance: OMALIZUMAB
     Route: 058
     Dates: start: 20141113
  4. XOLAIR [Suspect]
     Active Substance: OMALIZUMAB
     Route: 058
     Dates: start: 20140605
  5. XOLAIR [Suspect]
     Active Substance: OMALIZUMAB
     Route: 058
     Dates: start: 20150618
  6. ADVAIR HFA [Concomitant]
     Active Substance: FLUTICASONE PROPIONATE\SALMETEROL XINAFOATE
  7. XOLAIR [Suspect]
     Active Substance: OMALIZUMAB
     Indication: ASTHMA
     Route: 058
     Dates: start: 20140116

REACTIONS (37)
  - Suicide attempt [Unknown]
  - Coma [Unknown]
  - Pallor [Not Recovered/Not Resolved]
  - Pain [Unknown]
  - Apathy [Unknown]
  - Asthma [Recovering/Resolving]
  - Feeling of despair [Unknown]
  - Head injury [Unknown]
  - Blood pressure fluctuation [Unknown]
  - Occipital neuralgia [Unknown]
  - Muscle strain [Recovering/Resolving]
  - Nasal congestion [Recovering/Resolving]
  - Anxiety [Unknown]
  - Respiratory disorder [Recovered/Resolved]
  - Cough [Recovering/Resolving]
  - Aphonia [Unknown]
  - Insomnia [Unknown]
  - Suicidal ideation [Unknown]
  - Lymphadenopathy [Unknown]
  - Lung disorder [Unknown]
  - Drug ineffective [Unknown]
  - Paralysis [Unknown]
  - Ligament sprain [Unknown]
  - Migraine [Not Recovered/Not Resolved]
  - Influenza [Unknown]
  - Dysphonia [Not Recovered/Not Resolved]
  - Hypersomnia [Unknown]
  - Nasopharyngitis [Recovering/Resolving]
  - Wheezing [Recovering/Resolving]
  - Stress [Unknown]
  - Oropharyngeal pain [Unknown]
  - Malaise [Not Recovered/Not Resolved]
  - Body temperature decreased [Unknown]
  - Bronchitis [Unknown]
  - Hyperventilation [Recovered/Resolved]
  - Fatigue [Recovered/Resolved]
  - Crying [Unknown]

NARRATIVE: CASE EVENT DATE: 20140212
